FAERS Safety Report 6274310-X (Version None)
Quarter: 2009Q3

REPORT INFORMATION
  Report Type: 
  Country: None (occurrence: None)
  Receive Date: 20090720
  Receipt Date: 20090710
  Transmission Date: 20100115
  Serious: Yes (Hospitalization)
  Sender: FDA-Public Use
  Company Number: JP-ABBOTT-09P-087-0575991-00

PATIENT
  Sex: Male
  Weight: 64 kg

DRUGS (4)
  1. CLARITHROMYCIN [Suspect]
     Indication: NASOPHARYNGITIS
     Route: 048
     Dates: start: 20090523
  2. LANSOPRAZOLE [Suspect]
     Indication: ABDOMINAL PAIN UPPER
     Route: 048
     Dates: start: 20090525
  3. PA [Concomitant]
     Indication: NASOPHARYNGITIS
     Dates: start: 20090523
  4. MARZULENE S [Concomitant]
     Indication: ABDOMINAL PAIN UPPER
     Dates: start: 20090525

REACTIONS (1)
  - ANAPHYLACTIC REACTION [None]
